FAERS Safety Report 18718825 (Version 1)
Quarter: 2021Q1

REPORT INFORMATION
  Report Type: Spontaneous
  Country: CN (occurrence: CN)
  Receive Date: 20210108
  Receipt Date: 20210108
  Transmission Date: 20210419
  Serious: Yes (Other)
  Sender: FDA-Public Use
  Company Number: CN-TAKEDA-2021TUS000067

PATIENT
  Age: 61 Year
  Sex: Female

DRUGS (2)
  1. HUMAN NORMAL IMMUNOGLOBULIN [Suspect]
     Active Substance: HUMAN IMMUNOGLOBULIN G
     Indication: TOXIC EPIDERMAL NECROLYSIS
     Dosage: UNK
     Route: 042
  2. FEBUXOSTAT. [Suspect]
     Active Substance: FEBUXOSTAT
     Indication: GLOMERULONEPHRITIS CHRONIC
     Dosage: UNK
     Route: 065

REACTIONS (2)
  - Off label use [Unknown]
  - Toxic epidermal necrolysis [Recovering/Resolving]
